FAERS Safety Report 7902951-X (Version None)
Quarter: 2011Q4

REPORT INFORMATION
  Report Type: 
  Country: None (occurrence: None)
  Receive Date: 20111103
  Receipt Date: 20111022
  Transmission Date: 20120403
  Serious: Yes (Hospitalization)
  Sender: FDA-Public Use
  Company Number: DSA_47942_2011

PATIENT
  Age: 41 Year
  Sex: Female

DRUGS (3)
  1. METOCLOPRAMIDE HYDROCHLORIDE [Suspect]
     Indication: PRODUCT USED FOR UNKNOWN INDICATION
     Dosage: (DF ORAL)
     Route: 048
     Dates: start: 20111022, end: 20111022
  2. CANDESARTAN CILEXETIL [Suspect]
     Indication: PRODUCT USED FOR UNKNOWN INDICATION
     Dosage: (DF ORAL)
     Route: 048
     Dates: start: 20111022, end: 20111022
  3. BUPROPION HYDROCHLORIDE [Suspect]
     Indication: PRODUCT USED FOR UNKNOWN INDICATION
     Dosage: (300 MG, NOT THE PRESCRIBED AMOUNT ORAL)
     Route: 048
     Dates: start: 20111022, end: 20111022

REACTIONS (4)
  - CARDIAC ARREST [None]
  - TACHYCARDIA [None]
  - MULTIPLE DRUG OVERDOSE INTENTIONAL [None]
  - PUPILLARY REFLEX IMPAIRED [None]
